FAERS Safety Report 5625967-5 (Version None)
Quarter: 2008Q1

REPORT INFORMATION
  Report Type: 
  Country: None (occurrence: None)
  Receive Date: 20080213
  Receipt Date: 20080213
  Transmission Date: 20080703
  Serious: Yes (Other)
  Sender: FDA-Public Use
  Company Number: None

PATIENT
  Sex: Female
  Weight: 88.4514 kg

DRUGS (2)
  1. LEVAQUIN [Suspect]
     Indication: DIVERTICULITIS
     Dosage: ONE TIME A DAY   PO
     Route: 048
     Dates: start: 20071126, end: 20071206
  2. LEVAQUIN [Suspect]
     Indication: DIVERTICULITIS
     Dosage: ONE TIME A DAY   PO
     Route: 048
     Dates: start: 20071208, end: 20071229

REACTIONS (6)
  - BURNING SENSATION [None]
  - DISEASE RECURRENCE [None]
  - DIVERTICULITIS [None]
  - GAIT DISTURBANCE [None]
  - JOINT SWELLING [None]
  - PAIN [None]
